FAERS Safety Report 24033658 (Version 1)
Quarter: 2024Q3

REPORT INFORMATION
  Report Type: Report from Study
  Country: GB (occurrence: GB)
  Receive Date: 20240701
  Receipt Date: 20240701
  Transmission Date: 20241016
  Serious: Yes (Hospitalization)
  Sender: JOHNSON AND JOHNSON
  Company Number: GB-JNJFOC-20240662514

PATIENT
  Sex: Female

DRUGS (10)
  1. TREMFYA [Suspect]
     Active Substance: GUSELKUMAB
     Indication: Product used for unknown indication
     Route: 058
     Dates: start: 20220404
  2. LANSOPRAZOLE [Concomitant]
     Active Substance: LANSOPRAZOLE
  3. CANDESARTAN [Concomitant]
     Active Substance: CANDESARTAN
  4. ATORVASTATIN [Concomitant]
     Active Substance: ATORVASTATIN
  5. ALPRENOLOL HYDROCHLORIDE [Concomitant]
     Active Substance: ALPRENOLOL HYDROCHLORIDE
  6. CARBOCYSTEINE [Concomitant]
     Active Substance: CARBOCYSTEINE
  7. CALCITROL [CALCIUM CARBONATE;ERGOCALCIFEROL;RETINOL] [Concomitant]
  8. PREMARIN [Concomitant]
     Active Substance: ESTROGENS, CONJUGATED
  9. CYANOCOBALAMIN [Concomitant]
     Active Substance: CYANOCOBALAMIN
  10. ASPIRIN [Concomitant]
     Active Substance: ASPIRIN

REACTIONS (4)
  - Lower respiratory tract infection [Unknown]
  - Cardiac failure [Unknown]
  - Respiratory failure [Unknown]
  - Renal failure [Unknown]
